FAERS Safety Report 6793948-4 (Version None)
Quarter: 2010Q2

REPORT INFORMATION
  Report Type: 
  Country: None (occurrence: None)
  Receive Date: 20100624
  Receipt Date: 20070810
  Transmission Date: 20101027
  Serious: Yes (Hospitalization)
  Sender: FDA-Public Use
  Company Number: US-PFIZER INC-ENC200700124

PATIENT
  Sex: Male

DRUGS (10)
  1. ARGATROBAN [Suspect]
     Indication: HEPARIN-INDUCED THROMBOCYTOPENIA
     Dosage: 1 MCG/KG/MIN,FREQUENCY:  UNK
     Route: 042
     Dates: start: 20070809, end: 20070810
  2. AZITHROMYCIN [Concomitant]
  3. VANCOMYCIN [Concomitant]
  4. INSULIN [Concomitant]
  5. FENTANYL [Concomitant]
  6. MIDAZOLAM HYDROCHLORIDE [Concomitant]
  7. EPOGEN [Concomitant]
  8. ESOMEPRAZOLE MAGNESIUM [Concomitant]
  9. DEXTROSE 5% AND SODIUM CHLORIDE 0.45% IN PLASTIC CONTAINER [Concomitant]
  10. METOPROLOL TARTRATE [Concomitant]

REACTIONS (1)
  - COAGULATION TIME PROLONGED [None]
